FAERS Safety Report 10511618 (Version 1)
Quarter: 2014Q4

REPORT INFORMATION
  Report Type: Spontaneous
  Country: IT (occurrence: IT)
  Receive Date: 20141010
  Receipt Date: 20141010
  Transmission Date: 20150528
  Serious: Yes (Hospitalization)
  Sender: FDA-Public Use
  Company Number: IT-BRISTOL-MYERS SQUIBB COMPANY-21464540

PATIENT
  Age: 52 Year
  Sex: Female

DRUGS (2)
  1. FEVARIN [Suspect]
     Active Substance: FLUVOXAMINE MALEATE
     Indication: DRUG ABUSE
     Dosage: 1DF=90CPR
     Route: 048
     Dates: start: 20140813, end: 20140813
  2. ABILIFY [Suspect]
     Active Substance: ARIPIPRAZOLE
     Indication: DRUG ABUSE
     Dosage: 1DF=77CPR
     Route: 048
     Dates: start: 20140813, end: 20140813

REACTIONS (3)
  - Drug abuse [Unknown]
  - Overdose [Unknown]
  - Acute respiratory failure [Unknown]

NARRATIVE: CASE EVENT DATE: 20140813
